FAERS Safety Report 5056977-7 (Version None)
Quarter: 2006Q2

REPORT INFORMATION
  Report Type: 
  Country: None (occurrence: None)
  Receive Date: 20060622
  Receipt Date: 20051122
  Transmission Date: 20061013
  Serious: Yes (Hospitalization)
  Sender: FDA-Public Use
  Company Number: US-JNJFOC-20050604331

PATIENT
  Age: 28 Year
  Sex: Male
  Weight: 77.1115 kg

DRUGS (1)
  1. FENTANYL TRANSDERMAL SYSTEM [Suspect]
     Indication: PAIN
     Dosage: SEE IMAGE   TRANSDERMAL
     Route: 062
     Dates: start: 20050301

REACTIONS (5)
  - CHILLS [None]
  - HYPERHIDROSIS [None]
  - INSOMNIA [None]
  - NAUSEA [None]
  - THERAPEUTIC RESPONSE DECREASED [None]
